FAERS Safety Report 7882304-3 (Version None)
Quarter: 2011Q4

REPORT INFORMATION
  Report Type: 
  Country: None (occurrence: None)
  Receive Date: 20111101
  Receipt Date: 20110613
  Transmission Date: 20120403
  Serious: No
  Sender: FDA-Public Use
  Company Number: US-AMGEN-USASP2011030258

PATIENT
  Sex: Female

DRUGS (1)
  1. ENBREL [Suspect]
     Indication: RHEUMATOID ARTHRITIS
     Dosage: 50 MG, QWK
     Dates: start: 20010601

REACTIONS (7)
  - NODULE [None]
  - RHEUMATOID ARTHRITIS [None]
  - VISION BLURRED [None]
  - SINUSITIS [None]
  - FUNGAL INFECTION [None]
  - VISUAL IMPAIRMENT [None]
  - EYE IRRITATION [None]
